FAERS Safety Report 6278718-8 (Version None)
Quarter: 2009Q3

REPORT INFORMATION
  Report Type: 
  Country: None (occurrence: None)
  Receive Date: 20090721
  Receipt Date: 20090710
  Transmission Date: 20100115
  Serious: Yes (Other)
  Sender: FDA-Public Use
  Company Number: 2009AL002561

PATIENT
  Age: 76 Year
  Sex: Male
  Weight: 74.8435 kg

DRUGS (8)
  1. DIGOXIN [Suspect]
     Dosage: 0.25MG, DAILY, PO
     Route: 048
     Dates: start: 20080404, end: 20080430
  2. CAPTOPRIL [Concomitant]
  3. RAMIPRIL [Concomitant]
  4. METOPROLOL SUCCINATE [Concomitant]
  5. AMIODARONE [Concomitant]
  6. COREG [Concomitant]
  7. ACIDOPHILUS [Concomitant]
  8. VITAMIN [Concomitant]

REACTIONS (9)
  - ARTHRALGIA [None]
  - ATRIAL FIBRILLATION [None]
  - ECONOMIC PROBLEM [None]
  - GAIT DISTURBANCE [None]
  - INJURY [None]
  - SURGERY [None]
  - THROMBOCYTOPENIA [None]
  - UNEVALUABLE EVENT [None]
  - VENTRICULAR EXTRASYSTOLES [None]
